FAERS Safety Report 9292694 (Version 1)
Quarter: 2013Q1

REPORT INFORMATION
  Report Type: Spontaneous
  Country: US (occurrence: None)
  Receive Date: 20121214
  Receipt Date: 20121214
  Transmission Date: 20140127
  Serious: Yes (Other)
  Sender: FDA-Public Use
  Company Number: US-JNJFOC-2007311256

PATIENT
  Sex: Female

DRUGS (1)
  1. SUDAFED 24 HOUR TABLET (PSEUDPHEDRINE HYDROCHLORIDE) TABLET [Suspect]
     Indication: PRODUCT USED FOR UNKNOWN INDICATION
     Dosage: 2 TABLETS AT ONCE
     Dates: start: 20070314, end: 20070314

REACTIONS (1)
  - Overdose [None]
